FAERS Safety Report 24008018 (Version 11)
Quarter: 2024Q4

REPORT INFORMATION
  Report Type: Spontaneous
  Country: US (occurrence: US)
  Receive Date: 20240625
  Receipt Date: 20241007
  Transmission Date: 20250115
  Serious: Yes (Other)
  Sender: NOVARTIS
  Company Number: US-002147023-NVSC2024US130772

PATIENT
  Sex: Female

DRUGS (4)
  1. KESIMPTA [Suspect]
     Active Substance: OFATUMUMAB
     Indication: Product used for unknown indication
     Dosage: UNK
     Route: 065
  2. VITAMIN D [Concomitant]
     Active Substance: VITAMIN D NOS
     Indication: Product used for unknown indication
     Dosage: UNK
     Route: 065
  3. MAGNESIUM [Concomitant]
     Active Substance: MAGNESIUM
     Indication: Product used for unknown indication
     Dosage: UNK
     Route: 065
  4. CRANBERRY [Concomitant]
     Active Substance: CRANBERRY
     Indication: Urinary tract infection
     Dosage: UNK
     Route: 065

REACTIONS (13)
  - Multiple sclerosis [Unknown]
  - Immunosuppression [Unknown]
  - Postmenopausal haemorrhage [Unknown]
  - Headache [Unknown]
  - Pyrexia [Unknown]
  - Pain in extremity [Unknown]
  - Back pain [Unknown]
  - Injection site pain [Unknown]
  - Insomnia [Unknown]
  - Fatigue [Unknown]
  - Chills [Unknown]
  - Visual impairment [Unknown]
  - Therapeutic response unexpected [Unknown]
